FAERS Safety Report 7444727-6 (Version None)
Quarter: 2011Q2

REPORT INFORMATION
  Report Type: 
  Country: None (occurrence: None)
  Receive Date: 20110429
  Receipt Date: 20100624
  Transmission Date: 20111010
  Serious: No
  Sender: FDA-Public Use
  Company Number: US-PFIZER INC-US-WYE-H16154210

PATIENT
  Age: 25 Year
  Sex: Male
  Weight: 86.2 kg

DRUGS (1)
  1. ADVIL ALLERGY SINUS [Suspect]
     Indication: NASAL CONGESTION
     Dosage: 1 CAPLET 2 TIMES DAILY
     Route: 048
     Dates: start: 20100618

REACTIONS (1)
  - DRUG INEFFECTIVE [None]
